FAERS Safety Report 18631859 (Version 3)
Quarter: 2021Q1

REPORT INFORMATION
  Report Type: Spontaneous
  Country: US (occurrence: US)
  Receive Date: 20201218
  Receipt Date: 20210312
  Transmission Date: 20210419
  Serious: No
  Sender: FDA-Public Use
  Company Number: US-TAKEDA-2020TUS058059

PATIENT
  Sex: Female
  Weight: 61 kg

DRUGS (35)
  1. HYQVIA [Suspect]
     Active Substance: HUMAN IMMUNOGLOBULIN G\HYALURONIDASE RECOMBINANT HUMAN
     Indication: IMMUNODEFICIENCY COMMON VARIABLE
     Dosage: 30 GRAM, Q4WEEKS
     Route: 058
     Dates: start: 20201205
  2. VITAMIN B12 + FOLIC ACID [Concomitant]
  3. ACETAMINOPHEN. [Concomitant]
     Active Substance: ACETAMINOPHEN
  4. DIVALPROEX [Concomitant]
     Active Substance: DIVALPROEX SODIUM
  5. METHOCARBAMOL. [Concomitant]
     Active Substance: METHOCARBAMOL
  6. PERCOCET [Concomitant]
     Active Substance: ACETAMINOPHEN\OXYCODONE HYDROCHLORIDE
  7. CALCIUM [Concomitant]
     Active Substance: CALCIUM
  8. METOPROLOL. [Concomitant]
     Active Substance: METOPROLOL
  9. LASIX [Concomitant]
     Active Substance: FUROSEMIDE
  10. VISTARIL [Concomitant]
     Active Substance: HYDROXYZINE PAMOATE
  11. CRESTOR [Concomitant]
     Active Substance: ROSUVASTATIN CALCIUM
  12. MOVANTIK [Concomitant]
     Active Substance: NALOXEGOL OXALATE
  13. MAGNESIUM [Concomitant]
     Active Substance: MAGNESIUM
  14. BENZONATATE. [Concomitant]
     Active Substance: BENZONATATE
  15. ASPIRIN [ACETYLSALICYLIC ACID] [Concomitant]
     Active Substance: ASPIRIN
  16. HYDROXYZINE [Concomitant]
     Active Substance: HYDROXYZINE HYDROCHLORIDE
  17. CHOLECALCIFEROL [Concomitant]
     Active Substance: CHOLECALCIFEROL
  18. DIPHENHYDRAMINE. [Concomitant]
     Active Substance: DIPHENHYDRAMINE
  19. EPINEPHRINE. [Concomitant]
     Active Substance: EPINEPHRINE
  20. ALBUTEROL [SALBUTAMOL] [Concomitant]
     Active Substance: ALBUTEROL
  21. FLONASE [MOMETASONE FUROATE] [Concomitant]
     Active Substance: MOMETASONE FUROATE
  22. LISINOPRIL. [Concomitant]
     Active Substance: LISINOPRIL
  23. DEPAKOTE [Concomitant]
     Active Substance: DIVALPROEX SODIUM
  24. VITAMIN E [Concomitant]
     Active Substance: .ALPHA.-TOCOPHEROL
  25. COLACE [Concomitant]
     Active Substance: DOCUSATE SODIUM
  26. KETOROLAC [Concomitant]
     Active Substance: KETOROLAC TROMETHAMINE
  27. LMX4 [Concomitant]
     Active Substance: LIDOCAINE
  28. GABAPENTIN. [Concomitant]
     Active Substance: GABAPENTIN
  29. PROTONIX [OMEPRAZOLE] [Concomitant]
     Active Substance: OMEPRAZOLE
  30. OCUVITE [ASCORBIC ACID;BETACAROTENE;COPPER;TOCOFERSOLAN;ZINC] [Concomitant]
  31. XYZAL [Concomitant]
     Active Substance: LEVOCETIRIZINE DIHYDROCHLORIDE
  32. SIMETHICONE (DIMETHICONE) [Concomitant]
     Active Substance: DIMETHICONE
  33. KLOR?CON [Concomitant]
     Active Substance: POTASSIUM CHLORIDE
  34. PROMETHAZINE [Concomitant]
     Active Substance: PROMETHAZINE HYDROCHLORIDE
  35. VESICARE [Concomitant]
     Active Substance: SOLIFENACIN SUCCINATE

REACTIONS (3)
  - Infusion site swelling [Unknown]
  - Infection [Unknown]
  - Infusion site discomfort [Unknown]
